FAERS Safety Report 10063638 (Version 3)
Quarter: 2015Q2

REPORT INFORMATION
  Report Type: Spontaneous
  Country: US (occurrence: US)
  Receive Date: 20140407
  Receipt Date: 20150527
  Transmission Date: 20150821
  Serious: Yes (Death, Hospitalization, Other)
  Sender: FDA-Public Use
  Company Number: US-MERCK-1404USA003907

PATIENT
  Sex: Male

DRUGS (1)
  1. JANUVIA [Suspect]
     Active Substance: SITAGLIPTIN PHOSPHATE
     Indication: TYPE 2 DIABETES MELLITUS
     Dosage: 100 MG, QD
     Route: 048
     Dates: start: 20070522, end: 20090923

REACTIONS (25)
  - Decubitus ulcer [Unknown]
  - Normochromic normocytic anaemia [Unknown]
  - Acute kidney injury [Recovering/Resolving]
  - Calculus bladder [Unknown]
  - Deep vein thrombosis [Unknown]
  - Oesophagitis [Unknown]
  - Palpitations [Unknown]
  - Surgery [Unknown]
  - Thrombocytopenia [Unknown]
  - Hypoglycaemia [Recovering/Resolving]
  - Diarrhoea [Unknown]
  - Intestinal adenocarcinoma [Unknown]
  - Dehydration [Recovering/Resolving]
  - Mental status changes [Unknown]
  - Hiatus hernia [Unknown]
  - Pancreatitis [Unknown]
  - Inguinal hernia [Unknown]
  - Gastric ulcer perforation [Unknown]
  - Pancreatic carcinoma [Fatal]
  - Hypercalcaemia [Recovering/Resolving]
  - Nephrolithiasis [Unknown]
  - Pericardial effusion [Unknown]
  - Benign prostatic hyperplasia [Unknown]
  - Depression [Unknown]
  - Oropharyngeal candidiasis [Unknown]

NARRATIVE: CASE EVENT DATE: 2007
